FAERS Safety Report 12218361 (Version 5)
Quarter: 2016Q3

REPORT INFORMATION
  Report Type: Spontaneous
  Country: US (occurrence: US)
  Receive Date: 20160329
  Receipt Date: 20160704
  Transmission Date: 20161109
  Serious: Yes (Hospitalization, Disabling, Other)
  Sender: FDA-Public Use
  Company Number: US-APOTEX-2016AP007302

PATIENT
  Sex: Female
  Weight: 72.57 kg

DRUGS (7)
  1. GABAPENTIN PFIZER [Suspect]
     Active Substance: GABAPENTIN
     Indication: FIBROMYALGIA
     Dosage: 2 OR 3 DF, UNKNOWN
     Route: 048
     Dates: start: 20160304, end: 20160308
  2. PAXIL [Suspect]
     Active Substance: PAROXETINE HYDROCHLORIDE
     Indication: DEPRESSION
     Dosage: 75 MG, QD
     Route: 065
  3. GABAPENTIN PFIZER [Suspect]
     Active Substance: GABAPENTIN
     Indication: PAIN
  4. CLONAZEPAM. [Concomitant]
     Active Substance: CLONAZEPAM
     Indication: PRODUCT USED FOR UNKNOWN INDICATION
     Dosage: 0.5, TWO TIMES A DAY
     Route: 065
  5. PAXIL [Suspect]
     Active Substance: PAROXETINE HYDROCHLORIDE
     Indication: ANXIETY
     Dosage: 50 MG, QD
     Route: 065
  6. TRAZODONE [Concomitant]
     Active Substance: TRAZODONE HYDROCHLORIDE
     Indication: SLEEP DISORDER
     Dosage: 100 MG, Q.H.S.
     Route: 065
  7. OMEPRAZOLE. [Concomitant]
     Active Substance: OMEPRAZOLE
     Indication: PRODUCT USED FOR UNKNOWN INDICATION
     Dosage: 40 MG, Q.AM
     Route: 065

REACTIONS (10)
  - Dizziness [Recovered/Resolved]
  - Depression [Unknown]
  - Abasia [Unknown]
  - Asthenia [Unknown]
  - Anxiety [Unknown]
  - Restlessness [Unknown]
  - Drug interaction [Unknown]
  - Drug ineffective [Recovering/Resolving]
  - Fatigue [Not Recovered/Not Resolved]
  - Back pain [Not Recovered/Not Resolved]
